FAERS Safety Report 5315596-5 (Version None)
Quarter: 2007Q2

REPORT INFORMATION
  Report Type: 
  Country: None (occurrence: None)
  Receive Date: 20070503
  Receipt Date: 20070502
  Transmission Date: 20071010
  Serious: Yes (Other)
  Sender: FDA-Public Use
  Company Number: US-BRISTOL-MYERS SQUIBB COMPANY-13767173

PATIENT
  Age: 6 Year
  Sex: Male
  Weight: 18 kg

DRUGS (3)
  1. AMOXICILLIN [Suspect]
     Indication: PHARYNGITIS STREPTOCOCCAL
     Route: 048
     Dates: start: 20070430
  2. NOVOLOG [Concomitant]
     Route: 042
  3. SODIUM CHLORIDE [Concomitant]
     Route: 041

REACTIONS (1)
  - BLOOD GLUCOSE INCREASED [None]
